FAERS Safety Report 24166826 (Version 1)
Quarter: 2024Q3

REPORT INFORMATION
  Report Type: Spontaneous
  Country: NL (occurrence: NL)
  Receive Date: 20240802
  Receipt Date: 20240802
  Transmission Date: 20241016
  Serious: Yes (Other)
  Sender: ROCHE
  Company Number: None

PATIENT
  Age: 70 Year
  Sex: Female
  Weight: 101 kg

DRUGS (7)
  1. TOCILIZUMAB [Suspect]
     Active Substance: TOCILIZUMAB
     Indication: Giant cell arteritis
     Dosage: 1X PER WEEK 1 STUK
     Route: 065
     Dates: start: 20240423
  2. CALCIUM/COLECALCIFEROL TAB 500MG/200IE / Brand name not specified [Concomitant]
     Dosage: KAUWTABLET,  500 MG/20 UG
  3. PREDNISOLON CAPSULE 30MG / Brand name not specified [Concomitant]
     Dosage: CAPSULE, 30 MG (MILLIGRAM)
  4. ALENDRONIC ACID [Concomitant]
     Active Substance: ALENDRONIC ACID
     Dosage: TABLET, 70 MG (MILLIGRAM)
  5. CITALOPRAM HYDROBROMIDE [Concomitant]
     Active Substance: CITALOPRAM HYDROBROMIDE
     Dosage: OMHULDE TABLET, 20 MG (MILLIGRAM)
  6. CETOMACROGOL CREME/VASELINE/GLYCERINE 80/10/10 / Brand name not specif [Concomitant]
     Dosage: ZALF, ZO VAAK ALS NODIG
  7. MOMETASON FUROAAT / Brand name not specified [Concomitant]
     Dosage: ZALF 1 MG/G

REACTIONS (14)
  - Fatigue [Not Recovered/Not Resolved]
  - Dizziness [Not Recovered/Not Resolved]
  - Brain fog [Not Recovered/Not Resolved]
  - Ageusia [Not Recovered/Not Resolved]
  - Contusion [Not Recovered/Not Resolved]
  - Deafness [Not Recovered/Not Resolved]
  - Muscular weakness [Not Recovered/Not Resolved]
  - Skin papilloma [Not Recovered/Not Resolved]
  - Disturbance in attention [Not Recovered/Not Resolved]
  - Regurgitation [Not Recovered/Not Resolved]
  - Diarrhoea [Not Recovered/Not Resolved]
  - Dry mouth [Not Recovered/Not Resolved]
  - Nausea [Not Recovered/Not Resolved]
  - Depressed mood [Not Recovered/Not Resolved]
